FAERS Safety Report 8268804-5 (Version None)
Quarter: 2012Q2

REPORT INFORMATION
  Report Type: 
  Country: None (occurrence: None)
  Receive Date: 20120409
  Receipt Date: 20120409
  Transmission Date: 20120825
  Serious: Yes (Life-Threatening, Hospitalization, Other)
  Sender: FDA-Public Use
  Company Number: None

PATIENT
  Sex: Male
  Weight: 90.718 kg

DRUGS (2)
  1. METOPROLOL TARTRATE [Suspect]
     Indication: VENTRICULAR EXTRASYSTOLES
     Dosage: 25 MG
     Route: 048
     Dates: start: 20110624, end: 20120326
  2. METOPROLOL TARTRATE [Suspect]
     Indication: HEART RATE IRREGULAR
     Dosage: 25 MG
     Route: 048
     Dates: start: 20110624, end: 20120326

REACTIONS (31)
  - DYSARTHRIA [None]
  - SPEECH DISORDER [None]
  - FATIGUE [None]
  - BLOOD PRESSURE SYSTOLIC DECREASED [None]
  - SOMNOLENCE [None]
  - CHILLS [None]
  - BRADYCARDIA [None]
  - FALL [None]
  - PAIN [None]
  - WHEEZING [None]
  - DISORIENTATION [None]
  - APPETITE DISORDER [None]
  - MUSCLE TIGHTNESS [None]
  - MUSCLE CONTRACTIONS INVOLUNTARY [None]
  - HAEMORRHAGE [None]
  - HYPOPHAGIA [None]
  - ABASIA [None]
  - DIZZINESS [None]
  - OEDEMA PERIPHERAL [None]
  - OVERDOSE [None]
  - SYNCOPE [None]
  - PSORIASIS [None]
  - HALLUCINATION, VISUAL [None]
  - CONFUSIONAL STATE [None]
  - BRONCHOSPASM [None]
  - SKIN DISCOLOURATION [None]
  - ASTHENIA [None]
  - DYSPNOEA [None]
  - ACTIVITIES OF DAILY LIVING IMPAIRED [None]
  - RASH PRURITIC [None]
  - COORDINATION ABNORMAL [None]
